FAERS Safety Report 8288385-X (Version None)
Quarter: 2012Q2

REPORT INFORMATION
  Report Type: 
  Country: None (occurrence: None)
  Receive Date: 20120416
  Receipt Date: 20120406
  Transmission Date: 20120825
  Serious: Yes (Other)
  Sender: FDA-Public Use
  Company Number: US-BAXTER-2012BAX001192

PATIENT
  Sex: Male
  Weight: 108.96 kg

DRUGS (2)
  1. GAMMAGARD LIQUID [Suspect]
     Route: 042
     Dates: start: 20120217
  2. ATIVAN [Concomitant]
     Route: 048

REACTIONS (8)
  - ARTHRALGIA [None]
  - NAUSEA [None]
  - HEADACHE [None]
  - MALAISE [None]
  - FATIGUE [None]
  - MENINGITIS ASEPTIC [None]
  - HYPOTENSION [None]
  - HYPERTENSION [None]
